FAERS Safety Report 8574328-8 (Version None)
Quarter: 2012Q3

REPORT INFORMATION
  Report Type: 
  Country: None (occurrence: None)
  Receive Date: 20120806
  Receipt Date: 20120730
  Transmission Date: 20120928
  Serious: Yes (Other)
  Sender: FDA-Public Use
  Company Number: TR-TEVA-351248ISR

PATIENT
  Age: 8 Year
  Sex: Female

DRUGS (9)
  1. VINCRISTINE [Suspect]
     Indication: ACUTE LYMPHOCYTIC LEUKAEMIA
     Dosage: BERLIN-FRANKFURT-MUNSTER PROTOCOL
     Route: 065
  2. DOXORUBICIN HYDROCHLORIDE [Suspect]
  3. ASPARAGINASE [Suspect]
     Indication: ACUTE LYMPHOCYTIC LEUKAEMIA
     Dosage: BERLIN-FRANKFURT-MUNSTER PROTOCOL
     Route: 065
  4. CYTARABINE [Suspect]
     Indication: ACUTE LYMPHOCYTIC LEUKAEMIA
     Dosage: BERLIN-FRANKFURT-MUNSTER PROTOCOL
     Route: 065
  5. MERCAPTOPURINE [Suspect]
     Indication: ACUTE LYMPHOCYTIC LEUKAEMIA
     Dosage: BERLIN-FRANKFURT-MUNSTER PROTOCOL
     Route: 065
     Dates: end: 20040701
  6. PREDNISONE [Suspect]
     Indication: ACUTE LYMPHOCYTIC LEUKAEMIA
     Dosage: BERLIN-FRANKFURT-MUNSTER PROTOCOL
     Route: 065
  7. METHOTREXATE [Suspect]
     Indication: ACUTE LYMPHOCYTIC LEUKAEMIA
     Dosage: BERLIN-FRANKFURT-MUNSTER PROTOCOL
     Route: 037
     Dates: end: 20040701
  8. METHOTREXATE [Suspect]
     Dosage: BERLIN-FRANKFURT-MUNSTER PROTOCOL
     Route: 065
  9. CYCLOPHOSPHAMIDE [Suspect]
     Indication: ACUTE LYMPHOCYTIC LEUKAEMIA
     Dosage: BERLIN-FRANKFURT-MUNSTER PROTOCOL
     Route: 065

REACTIONS (4)
  - SALIVARY GLAND CANCER RECURRENT [None]
  - MUCOEPIDERMOID CARCINOMA [None]
  - SALIVARY GLAND CANCER [None]
  - VIITH NERVE PARALYSIS [None]
